FAERS Safety Report 8632986 (Version 3)
Quarter: 2012Q4

REPORT INFORMATION
  Report Type: Report from Study
  Country: US (occurrence: US)
  Receive Date: 20120625
  Receipt Date: 20121025
  Transmission Date: 20130627
  Serious: Yes (Death)
  Sender: FDA-Public Use
  Company Number: US-GLAXOSMITHKLINE-A0980400A

PATIENT
  Age: 68 Year
  Sex: Female
  Weight: 163.7 kg

DRUGS (5)
  1. PAZOPANIB [Suspect]
     Indication: OVARIAN EPITHELIAL CANCER
     Dosage: 800MG Per day
     Route: 048
     Dates: start: 20120423
  2. PACLITAXEL [Suspect]
     Indication: OVARIAN EPITHELIAL CANCER
     Dosage: 80MGM2 Cyclic
     Route: 042
     Dates: start: 20120423
  3. AMLODIPINE [Concomitant]
     Dosage: 2.5MG Per day
     Route: 048
  4. BACTRIM [Concomitant]
  5. MUCINEX [Concomitant]

REACTIONS (1)
  - Death [Fatal]
